FAERS Safety Report 4510785-1 (Version None)
Quarter: 2004Q4

REPORT INFORMATION
  Report Type: 
  Country: None (occurrence: None)
  Receive Date: 20041124
  Receipt Date: 20030605
  Transmission Date: 20050328
  Serious: Yes (Hospitalization, Disabling, Other)
  Sender: FDA-Public Use
  Company Number: US-MERCK-0306USA00781

PATIENT
  Sex: Male

DRUGS (1)
  1. VIOXX [Suspect]
     Route: 048

REACTIONS (26)
  - ADVERSE EVENT [None]
  - AORTIC ANEURYSM [None]
  - AORTIC OCCLUSION [None]
  - ASTHENIA [None]
  - BREATH SOUNDS DECREASED [None]
  - CARDIOMYOPATHY [None]
  - CHEST PAIN [None]
  - CREPITATIONS [None]
  - DEVICE FAILURE [None]
  - DIZZINESS [None]
  - DYSPEPSIA [None]
  - DYSPNOEA [None]
  - ERECTILE DYSFUNCTION [None]
  - HEADACHE [None]
  - HYPERTENSION [None]
  - HYPOAESTHESIA [None]
  - ILEUS [None]
  - INTERMITTENT CLAUDICATION [None]
  - LIMB DISCOMFORT [None]
  - MUSCLE CRAMP [None]
  - MYOCARDIAL INFARCTION [None]
  - PERIPHERAL VASCULAR DISORDER [None]
  - POLYTRAUMATISM [None]
  - POST PROCEDURAL COMPLICATION [None]
  - RENAL TUBULAR NECROSIS [None]
  - VISION BLURRED [None]
